FAERS Safety Report 12885296 (Version 1)
Quarter: 2016Q4

REPORT INFORMATION
  Report Type: Spontaneous
  Country: CH (occurrence: CH)
  Receive Date: 20161026
  Receipt Date: 20161026
  Transmission Date: 20170207
  Serious: Yes (Hospitalization)
  Sender: FDA-Public Use
  Company Number: CH-ELI_LILLY_AND_COMPANY-CH201610005781

PATIENT
  Age: 51 Year
  Sex: Female

DRUGS (2)
  1. REMERON [Suspect]
     Active Substance: MIRTAZAPINE
     Indication: DEPRESSION
     Dosage: 15 MG, QD
     Route: 048
     Dates: start: 2008, end: 20160203
  2. CYMBALTA [Suspect]
     Active Substance: DULOXETINE HYDROCHLORIDE
     Indication: DEPRESSION
     Dosage: 90 MG, QD
     Route: 048
     Dates: start: 2008, end: 20160203

REACTIONS (3)
  - Affect lability [Recovered/Resolved]
  - Delusional disorder, erotomanic type [Recovered/Resolved]
  - Mania [Recovering/Resolving]

NARRATIVE: CASE EVENT DATE: 201601
